FAERS Safety Report 15415222 (Version 1)
Quarter: 2018Q3

REPORT INFORMATION
  Report Type: Spontaneous
  Country: FI (occurrence: FI)
  Receive Date: 20180921
  Receipt Date: 20180921
  Transmission Date: 20181010
  Serious: Yes (Disabling)
  Sender: FDA-Public Use
  Company Number: FI-OTSUKA-2018_031347

PATIENT
  Age: 22 Year
  Sex: Male

DRUGS (1)
  1. ABILIFY MAINTENA [Suspect]
     Active Substance: ARIPIPRAZOLE
     Indication: SCHIZOPHRENIA
     Dosage: UNK
     Route: 065

REACTIONS (12)
  - Mania [Not Recovered/Not Resolved]
  - Compulsive shopping [Not Recovered/Not Resolved]
  - Drug dependence [Not Recovered/Not Resolved]
  - Fear [Not Recovered/Not Resolved]
  - Impulse-control disorder [Not Recovered/Not Resolved]
  - Drug ineffective [Unknown]
  - Disturbance in attention [Not Recovered/Not Resolved]
  - Gambling disorder [Not Recovered/Not Resolved]
  - Economic problem [Unknown]
  - Hallucination [Not Recovered/Not Resolved]
  - Restlessness [Not Recovered/Not Resolved]
  - Poor personal hygiene [Unknown]

NARRATIVE: CASE EVENT DATE: 201410
